FAERS Safety Report 9210672 (Version 2)
Quarter: 2013Q2

REPORT INFORMATION
  Report Type: Spontaneous
  Country: CN (occurrence: CN)
  Receive Date: 20130404
  Receipt Date: 20130411
  Transmission Date: 20140414
  Serious: Yes (Hospitalization)
  Sender: FDA-Public Use
  Company Number: CN-ASTRAZENECA-2013SE20604

PATIENT
  Age: 79 Year
  Sex: Male

DRUGS (3)
  1. CASODEX [Suspect]
     Indication: PROSTATE CANCER
     Route: 048
     Dates: start: 20130315
  2. ZOLADEX [Suspect]
     Indication: PROSTATE CANCER
     Route: 058
     Dates: start: 20130322
  3. PLAVIX [Concomitant]
     Route: 048

REACTIONS (2)
  - Pituitary tumour benign [Not Recovered/Not Resolved]
  - Pituitary haemorrhage [Not Recovered/Not Resolved]
